FAERS Safety Report 12166713 (Version 2)
Quarter: 2016Q2

REPORT INFORMATION
  Report Type: Spontaneous
  Country: US (occurrence: US)
  Receive Date: 20160310
  Receipt Date: 20160418
  Transmission Date: 20160815
  Serious: No
  Sender: FDA-Public Use
  Company Number: US-ASTRAZENECA-2016SE22957

PATIENT
  Age: 24528 Day
  Sex: Female
  Weight: 55.3 kg

DRUGS (2)
  1. FASLODEX [Suspect]
     Active Substance: FULVESTRANT
     Indication: METASTASES TO BREAST
     Route: 030
     Dates: start: 20151206
  2. IBRANCE [Suspect]
     Active Substance: PALBOCICLIB
     Indication: METASTASES TO BONE

REACTIONS (7)
  - Muscle tightness [Unknown]
  - Bone pain [Unknown]
  - Pelvic pain [Unknown]
  - Pain [Unknown]
  - Injection site pain [Unknown]
  - Pain in extremity [Unknown]
  - Injection site pain [Unknown]

NARRATIVE: CASE EVENT DATE: 20151206
